FAERS Safety Report 4979168-4 (Version None)
Quarter: 2006Q2

REPORT INFORMATION
  Report Type: 
  Country: None (occurrence: None)
  Receive Date: 20060421
  Receipt Date: 20060414
  Transmission Date: 20061013
  Serious: Yes (Other)
  Sender: FDA-Public Use
  Company Number: US-AVENTIS-200613633US

PATIENT
  Sex: Female

DRUGS (1)
  1. CLOMIPHENE CITRATE [Suspect]
     Dosage: DOSE: UNK

REACTIONS (1)
  - SMEAR CERVIX ABNORMAL [None]
